FAERS Safety Report 7347087-4 (Version None)
Quarter: 2011Q1

REPORT INFORMATION
  Report Type: 
  Country: None (occurrence: None)
  Receive Date: 20110302
  Receipt Date: 20110203
  Transmission Date: 20110831
  Serious: Yes (Hospitalization, Other)
  Sender: FDA-Public Use
  Company Number: 20109208

PATIENT
  Sex: Female

DRUGS (1)
  1. LIORESAL [Suspect]
     Indication: MUSCLE SPASTICITY
     Dosage: 523.8 MCG, DAILY, INTRATHECAL
     Route: 037

REACTIONS (6)
  - UNDERDOSE [None]
  - DISEASE PROGRESSION [None]
  - OVERDOSE [None]
  - DYSTONIA [None]
  - MUSCLE SPASTICITY [None]
  - FALL [None]
